FAERS Safety Report 18078385 (Version 2)
Quarter: 2021Q2

REPORT INFORMATION
  Report Type: Spontaneous
  Country: GB (occurrence: GB)
  Receive Date: 20200728
  Receipt Date: 20210628
  Transmission Date: 20210717
  Serious: Yes (Hospitalization, Other)
  Sender: FDA-Public Use
  Company Number: GB-TEVA-2020-GB-1805842

PATIENT
  Age: 70 Year
  Sex: Male

DRUGS (4)
  1. PREDNISOLONE. [Suspect]
     Active Substance: PREDNISOLONE
     Dosage: 80 MILLIGRAM DAILY; FOR IMMUNE?MEDIATED COLITIS
     Route: 048
  2. PREDNISOLONE. [Suspect]
     Active Substance: PREDNISOLONE
     Indication: IMMUNE-MEDIATED ENTEROCOLITIS
     Dosage: 30 MILLIGRAM DAILY; FOR DERMATITIS
     Route: 048
  3. METHYLPREDNISOLONE. [Suspect]
     Active Substance: METHYLPREDNISOLONE
     Indication: IMMUNE-MEDIATED ENTEROCOLITIS
     Dosage: 150 MILLIGRAM DAILY;
     Route: 042
  4. IPILIMUMAB [Suspect]
     Active Substance: IPILIMUMAB
     Indication: MALIGNANT MELANOMA
     Dosage: RECEIVED FOUR CYCLES OF 3 MG/KG/3 WEEKS
     Route: 065

REACTIONS (5)
  - Epstein Barr virus positive mucocutaneous ulcer [Unknown]
  - Large intestine perforation [Unknown]
  - Dermatitis [Unknown]
  - Drug ineffective [Unknown]
  - Immune-mediated enterocolitis [Unknown]
